FAERS Safety Report 9234024 (Version 6)
Quarter: 2014Q1

REPORT INFORMATION
  Report Type: Spontaneous
  Country: US (occurrence: US)
  Receive Date: 20130416
  Receipt Date: 20140213
  Transmission Date: 20141002
  Serious: Yes (Hospitalization, Other)
  Sender: FDA-Public Use
  Company Number: US-009507513-1304USA004052

PATIENT
  Sex: Female
  Weight: 78.5 kg

DRUGS (12)
  1. FOSAMAX [Suspect]
     Indication: OSTEOPENIA
     Dosage: 70 MG, QW
     Route: 048
     Dates: start: 200106, end: 200803
  2. FOSAMAX [Suspect]
     Indication: OSTEOPOROSIS
  3. ALENDRONATE SODIUM [Suspect]
     Indication: OSTEOPOROSIS
     Dosage: 70 MG, UNK
     Route: 048
     Dates: start: 200803, end: 201101
  4. NIACIN [Concomitant]
     Dosage: 500 MG, QD,ONCE A DAY
     Dates: start: 1998
  5. CALCIUM (UNSPECIFIED) [Concomitant]
     Indication: OSTEOPOROSIS
     Dosage: 600 MG- 1000MG, QD, ONCE A DAY
     Dates: start: 1998
  6. MAGNESIUM (UNSPECIFIED) [Concomitant]
     Dosage: 400 MG, QD,ONCE A DAY
     Dates: start: 1998
  7. VITAMINS (UNSPECIFIED) [Concomitant]
     Dosage: ONE, QD, ONCE A DAY
     Dates: start: 1998
  8. ASCORBIC ACID [Concomitant]
     Dosage: 500 MG, QD, ONCE A DAY
     Dates: start: 1998
  9. VITAMIN D (UNSPECIFIED) [Concomitant]
     Indication: OSTEOPOROSIS
     Dosage: 1000 IU, BID
     Dates: start: 1998
  10. OMEGA-3 MARINE TRIGLYCERIDES [Concomitant]
     Dosage: 1000 MG, TID
     Dates: start: 1998
  11. VITAMIN E [Concomitant]
     Dosage: 400 MG, QD, ONCE A DAY
     Dates: start: 1998
  12. COCONUT OIL [Concomitant]
     Dosage: 400 MG, 2 CAPS A DAY
     Dates: start: 1998

REACTIONS (19)
  - Femur fracture [Unknown]
  - Intramedullary rod insertion [Unknown]
  - Intramedullary rod insertion [Unknown]
  - Femur fracture [Unknown]
  - Breast cancer [Unknown]
  - Surgery [Unknown]
  - Hand fracture [Unknown]
  - Hypertension [Unknown]
  - Gastrointestinal disorder [Unknown]
  - Hypercholesterolaemia [Unknown]
  - Oophorectomy [Unknown]
  - Hysterectomy [Unknown]
  - Adverse event [Unknown]
  - Chronic obstructive pulmonary disease [Not Recovered/Not Resolved]
  - Osteoarthritis [Unknown]
  - Mitral valve prolapse [Unknown]
  - Sinus operation [Unknown]
  - Depression [Unknown]
  - Arthralgia [Not Recovered/Not Resolved]
